FAERS Safety Report 12485960 (Version 2)
Quarter: 2016Q3

REPORT INFORMATION
  Report Type: Report from Study
  Country: BR (occurrence: BR)
  Receive Date: 20160621
  Receipt Date: 20160829
  Transmission Date: 20161109
  Serious: Yes (Other)
  Sender: FDA-Public Use
  Company Number: PHHY2016BR079338

PATIENT
  Sex: Male
  Weight: 70 kg

DRUGS (5)
  1. NEOTIAPIM [Suspect]
     Active Substance: QUETIAPINE
     Indication: PARKINSON^S DISEASE
     Dosage: 25 MG, UNK
     Route: 065
     Dates: start: 201605
  2. NEOTIAPIM [Suspect]
     Active Substance: QUETIAPINE
     Indication: HALLUCINATION
  3. ENTACAPONE. [Concomitant]
     Active Substance: ENTACAPONE
     Indication: PRODUCT USED FOR UNKNOWN INDICATION
     Route: 065
  4. SERTRALINE [Concomitant]
     Active Substance: SERTRALINE HYDROCHLORIDE
     Indication: PRODUCT USED FOR UNKNOWN INDICATION
     Route: 065
  5. LEVODOPA BENSERAZIDE [Concomitant]
     Active Substance: BENSERAZIDE\LEVODOPA
     Indication: PRODUCT USED FOR UNKNOWN INDICATION
     Route: 065

REACTIONS (1)
  - Drug administration error [Unknown]
